FAERS Safety Report 12599373 (Version 4)
Quarter: 2016Q3

REPORT INFORMATION
  Report Type: Spontaneous
  Country: FR (occurrence: FR)
  Receive Date: 20160727
  Receipt Date: 20160825
  Transmission Date: 20161109
  Serious: Yes (Hospitalization, Other)
  Sender: FDA-Public Use
  Company Number: FR-PFIZER INC-2016355779

PATIENT
  Age: 62 Year
  Sex: Female

DRUGS (11)
  1. OFLOXACIN. [Suspect]
     Active Substance: OFLOXACIN
     Indication: STAPHYLOCOCCAL SEPSIS
     Dosage: 600 MG, DAILY
     Route: 048
     Dates: start: 20160615, end: 20160618
  2. CYMBALTA [Suspect]
     Active Substance: DULOXETINE HYDROCHLORIDE
     Indication: DEPRESSION
     Dosage: 60 MG, DAILY
     Route: 048
     Dates: end: 20160619
  3. BISOPROLOL FUMARATE. [Concomitant]
     Active Substance: BISOPROLOL FUMARATE
     Indication: HYPERTENSION
     Dosage: 20 MG, DAILY
     Route: 048
  4. LYRICA [Suspect]
     Active Substance: PREGABALIN
     Indication: PAIN
     Dosage: 100 MG, DAILY
     Route: 048
     Dates: start: 20160617, end: 20160619
  5. RIMACTAN /00146901/ [Concomitant]
     Active Substance: RIFAMPIN
     Indication: STAPHYLOCOCCAL SEPSIS
     Dosage: 900 MG, DAILY
     Route: 048
  6. LEVOTHYROX [Concomitant]
     Active Substance: LEVOTHYROXINE
     Dosage: 75 UG, DAILY
  7. OFLOXACIN. [Suspect]
     Active Substance: OFLOXACIN
     Dosage: 400 MG, DAILY
     Route: 048
     Dates: start: 20160619, end: 20160619
  8. LOXEN LP [Concomitant]
     Active Substance: NICARDIPINE
     Indication: HYPERTENSION
     Dosage: 100 MG, DAILY
     Route: 048
  9. DUROGESIC [Suspect]
     Active Substance: FENTANYL
     Indication: PAIN
     Dosage: 1 DF, EVERY 72 HOURS (75 MCG/HR (12.6 MG/31.5 CM2))
     Route: 062
     Dates: end: 20160619
  10. CORDARONE [Concomitant]
     Active Substance: AMIODARONE HYDROCHLORIDE
     Dosage: 200 MG, 1X/DAY
     Route: 048
  11. OXYNORM [Concomitant]
     Active Substance: OXYCODONE HYDROCHLORIDE
     Indication: PAIN
     Dosage: 80 MG,MAXIMUM AS NEEDED
     Route: 048
     Dates: end: 20160612

REACTIONS (7)
  - Fall [Unknown]
  - Confusional state [Unknown]
  - Glomerular filtration rate decreased [Unknown]
  - Hallucination [Recovered/Resolved]
  - Hypothermia [Unknown]
  - Staphylococcal bacteraemia [Unknown]
  - Seizure [Recovered/Resolved]

NARRATIVE: CASE EVENT DATE: 20160614
